FAERS Safety Report 4706226-1 (Version None)
Quarter: 2005Q2

REPORT INFORMATION
  Report Type: 
  Country: None (occurrence: None)
  Receive Date: 20050627
  Receipt Date: 20050510
  Transmission Date: 20051028
  Serious: No
  Sender: FDA-Public Use
  Company Number: IND-AE-05-SAN-024

PATIENT
  Sex: Male

DRUGS (3)
  1. SANCTURA [Suspect]
     Indication: HYPERTONIC BLADDER
     Dosage: 20 MG-BID-ORAL
     Route: 048
     Dates: start: 20040928, end: 20050510
  2. LIPITOR [Concomitant]
  3. QUININE SULFATE [Concomitant]

REACTIONS (2)
  - DENTAL CARIES [None]
  - DRY MOUTH [None]
